FAERS Safety Report 25736935 (Version 2)
Quarter: 2025Q3

REPORT INFORMATION
  Report Type: Spontaneous
  Country: US (occurrence: US)
  Receive Date: 20250828
  Receipt Date: 20250908
  Transmission Date: 20251021
  Serious: Yes (Other)
  Sender: OTSUKA
  Company Number: US-MMM-Otsuka-15GRSWQM

PATIENT
  Sex: Female
  Weight: 102.04 kg

DRUGS (3)
  1. ABILIFY [Suspect]
     Active Substance: ARIPIPRAZOLE
     Indication: Schizophrenia
     Route: 048
     Dates: end: 202507
  2. ABILIFY [Suspect]
     Active Substance: ARIPIPRAZOLE
     Indication: Bipolar disorder
  3. ARIPIPRAZOLE [Suspect]
     Active Substance: ARIPIPRAZOLE
     Indication: Product used for unknown indication
     Route: 065

REACTIONS (14)
  - Hallucinations, mixed [Recovering/Resolving]
  - Loss of consciousness [Unknown]
  - Hallucination, auditory [Recovering/Resolving]
  - Suicidal ideation [Recovered/Resolved]
  - Illness [Unknown]
  - Confusional state [Recovered/Resolved]
  - Feeling abnormal [Unknown]
  - Dyspnoea [Recovered/Resolved]
  - Memory impairment [Unknown]
  - Weight increased [Unknown]
  - Insomnia [Unknown]
  - Gambling disorder [Recovering/Resolving]
  - Hypertension [Unknown]
  - Tremor [Unknown]
